FAERS Safety Report 19055849 (Version 1)
Quarter: 2021Q1

REPORT INFORMATION
  Report Type: Spontaneous
  Country: FR (occurrence: FR)
  Receive Date: 20210324
  Receipt Date: 20210324
  Transmission Date: 20210420
  Serious: Yes (Death)
  Sender: FDA-Public Use
  Company Number: FR-PFIZER INC-2021272319

PATIENT
  Age: 76 Year
  Sex: Male
  Weight: 79 kg

DRUGS (6)
  1. ATORVASTATINE [ATORVASTATIN] [Concomitant]
     Active Substance: ATORVASTATIN
  2. KEYTRUDA [Suspect]
     Active Substance: PEMBROLIZUMAB
     Indication: RENAL CANCER
     Dosage: 200 MG, CYCLIC, 1X/3WEEKS
     Route: 041
     Dates: start: 20210112
  3. LERCANIDIPINE [Concomitant]
     Active Substance: LERCANIDIPINE
  4. KEYTRUDA [Suspect]
     Active Substance: PEMBROLIZUMAB
     Dosage: 200 MG, CYCLIC, 1X/3WEEKS
     Route: 041
     Dates: start: 20210202
  5. INLYTA [Suspect]
     Active Substance: AXITINIB
     Indication: RENAL CANCER
     Dosage: 3 MG, 2X/DAY
     Route: 048
     Dates: start: 20210112
  6. MODERNA COVID?19 VACCINE [Suspect]
     Active Substance: CX-024414
     Indication: COVID-19 IMMUNISATION
     Dosage: UNK
     Route: 030
     Dates: start: 20210215, end: 20210215

REACTIONS (2)
  - Sudden death [Fatal]
  - Cardiac arrest [Fatal]

NARRATIVE: CASE EVENT DATE: 20210216
